FAERS Safety Report 4489924-7 (Version None)
Quarter: 2004Q4

REPORT INFORMATION
  Report Type: 
  Country: None (occurrence: None)
  Receive Date: 20041026
  Receipt Date: 20041019
  Transmission Date: 20050328
  Serious: Yes (Hospitalization)
  Sender: FDA-Public Use
  Company Number: 200412799GDS

PATIENT
  Age: 54 Year
  Sex: Male

DRUGS (3)
  1. ACETYLSALICYLIC ACID (ASA) (ACETYLSALICYLIC ACID) [Suspect]
     Indication: VASCULAR OCCLUSION
     Dosage: 100 MG, QD,
  2. INDOMETHACIN [Suspect]
     Indication: ARTHRALGIA
     Dosage: 25 MG, TOTAL DAILY,
  3. KREON [Concomitant]

REACTIONS (1)
  - COLITIS COLLAGENOUS [None]
